FAERS Safety Report 4402779-1 (Version None)
Quarter: 2004Q3

REPORT INFORMATION
  Report Type: 
  Country: None (occurrence: None)
  Receive Date: 20040721
  Receipt Date: 20040503
  Transmission Date: 20050211
  Serious: Yes (Death, Hospitalization)
  Sender: FDA-Public Use
  Company Number: US-BRISTOL-MYERS SQUIBB COMPANY-12577052

PATIENT
  Age: 68 Year
  Sex: Male
  Weight: 77 kg

DRUGS (7)
  1. ERBITUX [Suspect]
     Indication: COLORECTAL CANCER
     Dosage: LAST DOSE ADMINISTERED.
     Route: 042
     Dates: start: 20040427, end: 20040427
  2. IRINOTECAN [Suspect]
     Route: 042
     Dates: start: 20040427, end: 20040427
  3. COLACE [Concomitant]
  4. FLOVENT [Concomitant]
  5. MAXAIR [Concomitant]
  6. OXYCONTIN [Concomitant]
  7. PAXIL [Concomitant]
     Route: 048

REACTIONS (3)
  - ACUTE RESPIRATORY FAILURE [None]
  - DIARRHOEA [None]
  - RENAL FAILURE [None]
